FAERS Safety Report 8005654-9 (Version None)
Quarter: 2011Q4

REPORT INFORMATION
  Report Type: 
  Country: None (occurrence: None)
  Receive Date: 20111223
  Receipt Date: 20111219
  Transmission Date: 20120403
  Serious: Yes (Other)
  Sender: FDA-Public Use
  Company Number: US-VERTEX PHARMACEUTICALS INC.-AE-2011-003043

PATIENT
  Sex: Male

DRUGS (6)
  1. INTERFERON [Concomitant]
     Indication: HEPATITIS C
     Route: 058
     Dates: start: 20110827, end: 20111029
  2. SUBOXONE [Concomitant]
  3. NICOTINE [Concomitant]
  4. ASPIRIN [Concomitant]
  5. RIBAVIRIN [Concomitant]
     Indication: HEPATITIS C
     Route: 048
     Dates: start: 20110827, end: 20111029
  6. INCIVEK [Suspect]
     Indication: HEPATITIS C
     Route: 048
     Dates: start: 20110827, end: 20111025

REACTIONS (7)
  - NEUTROPENIA [None]
  - ALOPECIA [None]
  - WHITE BLOOD CELL COUNT DECREASED [None]
  - DRUG ERUPTION [None]
  - FACE OEDEMA [None]
  - PYREXIA [None]
  - EOSINOPHIL COUNT INCREASED [None]
